FAERS Safety Report 4890550-6 (Version None)
Quarter: 2006Q1

REPORT INFORMATION
  Report Type: 
  Country: None (occurrence: None)
  Receive Date: 20060123
  Receipt Date: 20060119
  Transmission Date: 20060701
  Serious: Yes (Hospitalization)
  Sender: FDA-Public Use
  Company Number: 2005BI021774

PATIENT
  Age: 32 Year
  Sex: Female

DRUGS (2)
  1. AVONEX [Suspect]
     Indication: MULTIPLE SCLEROSIS
     Dosage: 30 UG; QW; IM
     Route: 030
     Dates: start: 20040119, end: 20041013
  2. AVONEX [Suspect]
     Indication: MULTIPLE SCLEROSIS
     Dosage: 30 UG; QW; IM
     Route: 030
     Dates: start: 20041223

REACTIONS (9)
  - BRAIN OEDEMA [None]
  - CEREBROVASCULAR ACCIDENT [None]
  - FATIGUE [None]
  - HYPERVENTILATION [None]
  - MEMORY IMPAIRMENT [None]
  - PULMONARY OEDEMA [None]
  - RUPTURED CEREBRAL ANEURYSM [None]
  - SEDATION [None]
  - SUBCLAVIAN VEIN THROMBOSIS [None]
